FAERS Safety Report 15014082 (Version 3)
Quarter: 2018Q3

REPORT INFORMATION
  Report Type: Not Available
  Country: US (occurrence: US)
  Receive Date: 20180615
  Receipt Date: 20180719
  Transmission Date: 20181010
  Serious: Yes (Hospitalization)
  Sender: FDA-Public Use
  Company Number: US-NEUROCRINE BIOSCIENCES INC.-2018NBI01709

PATIENT
  Sex: Male

DRUGS (16)
  1. INGREZZA [Suspect]
     Active Substance: VALBENAZINE
     Route: 048
     Dates: start: 201709, end: 201805
  2. ISOSORBIDE MONONITRATE. [Concomitant]
     Active Substance: ISOSORBIDE MONONITRATE
  3. MEMANTINE. [Concomitant]
     Active Substance: MEMANTINE
  4. RANEXA [Concomitant]
     Active Substance: RANOLAZINE
  5. BUPROPION. [Concomitant]
     Active Substance: BUPROPION
  6. PLAVIX [Concomitant]
     Active Substance: CLOPIDOGREL BISULFATE
  7. BUSPIRONE [Concomitant]
     Active Substance: BUSPIRONE HYDROCHLORIDE
  8. BENZTROPINE. [Concomitant]
     Active Substance: BENZTROPINE
     Route: 048
  9. OMEPRAZOLE. [Concomitant]
     Active Substance: OMEPRAZOLE
  10. FENOFIBRATE. [Concomitant]
     Active Substance: FENOFIBRATE
  11. SIMVASTATIN. [Concomitant]
     Active Substance: SIMVASTATIN
  12. ZIPRASIDONE. [Concomitant]
     Active Substance: ZIPRASIDONE
  13. ASPIRIN. [Concomitant]
     Active Substance: ASPIRIN
  14. INGREZZA [Suspect]
     Active Substance: VALBENAZINE
     Indication: TARDIVE DYSKINESIA
     Route: 048
     Dates: start: 201709, end: 201709
  15. ALPRAZOLAM. [Concomitant]
     Active Substance: ALPRAZOLAM
  16. DONEPEZIL. [Concomitant]
     Active Substance: DONEPEZIL
     Route: 048

REACTIONS (1)
  - Pulmonary oedema [Recovered/Resolved]
